FAERS Safety Report 7222608-0 (Version None)
Quarter: 2011Q1

REPORT INFORMATION
  Report Type: 
  Country: None (occurrence: None)
  Receive Date: 20110112
  Receipt Date: 20101230
  Transmission Date: 20110831
  Serious: Yes (Other)
  Sender: FDA-Public Use
  Company Number: US-PFIZER INC-US-WYE-H18452910

PATIENT
  Sex: Male
  Weight: 123.4 kg

DRUGS (7)
  1. BUSPIRONE [Concomitant]
     Indication: ANXIETY
     Dosage: 10 MG, UNK
     Dates: start: 20091021
  2. LEXAPRO [Concomitant]
     Dosage: 20 MG, 1X/DAY
     Dates: start: 20080630, end: 20090408
  3. PRISTIQ [Suspect]
     Indication: DEPRESSION
     Dosage: 50.0 MG, 1X/DAY
     Route: 048
     Dates: start: 20070101
  4. ZYPREXA [Concomitant]
     Dosage: DOSE TAPERED TO DISCONTINUE
     Dates: start: 20090122, end: 20090408
  5. ABILIFY [Concomitant]
     Dosage: 20 MG, 1X/DAY
     Dates: start: 20080630, end: 20081203
  6. GEODON [Suspect]
     Dosage: 80 MG, 1X/DAY
     Route: 048
     Dates: start: 20090408
  7. ZYPREXA [Concomitant]
     Dosage: 10 MG, 1X/DAY
     Dates: start: 20081203, end: 20090121

REACTIONS (8)
  - NERVOUS SYSTEM DISORDER [None]
  - HYPERTENSION [None]
  - SPEECH DISORDER [None]
  - BRAIN CONTUSION [None]
  - CONDITION AGGRAVATED [None]
  - HYPOAESTHESIA FACIAL [None]
  - VIITH NERVE PARALYSIS [None]
  - DROOLING [None]
